FAERS Safety Report 9634301 (Version 1)
Quarter: 2013Q4

REPORT INFORMATION
  Report Type: Spontaneous
  Country: US (occurrence: US)
  Receive Date: 20131021
  Receipt Date: 20131021
  Transmission Date: 20140711
  Serious: Yes (Hospitalization, Other)
  Sender: FDA-Public Use
  Company Number: US-JNJFOC-20131009218

PATIENT
  Age: 56 Year
  Sex: Female

DRUGS (5)
  1. DOXORUBICIN [Suspect]
     Indication: BREAST CANCER
     Route: 042
  2. CYCLOPHOSPHAMIDE [Suspect]
     Indication: BREAST CANCER
     Route: 065
  3. PEGFILGRASTIM [Suspect]
     Indication: BREAST CANCER
     Dosage: ON DAY 2
     Route: 065
  4. DOCETAXEL [Suspect]
     Indication: BREAST CANCER
     Route: 065
  5. DOCETAXEL [Suspect]
     Indication: BREAST CANCER
     Dosage: WITHOUT GRANULOCYTE COLONY STIMULATING FACTOR (GCSF)
     Route: 065

REACTIONS (2)
  - Skin toxicity [Unknown]
  - Pyrexia [Unknown]
